FAERS Safety Report 5952657-1 (Version None)
Quarter: 2008Q4

REPORT INFORMATION
  Report Type: 
  Country: None (occurrence: None)
  Receive Date: 20081029
  Receipt Date: 20081005
  Transmission Date: 20090506
  Serious: Yes (Life-Threatening, Hospitalization, Other)
  Sender: FDA-Public Use
  Company Number: A0720862A

PATIENT
  Age: 73 Year
  Sex: Female
  Weight: 62.4603 kg

DRUGS (7)
  1. RYTHMOL SR [Suspect]
     Indication: ATRIAL FIBRILLATION
     Dosage: 450 MG / PER DAY / ORAL
     Route: 048
     Dates: start: 20070101, end: 20070613
  2. RYTHMOL SR [Suspect]
     Indication: ATRIAL FLUTTER
     Dosage: 450 MG / PER DAY / ORAL
     Route: 048
     Dates: start: 20070101, end: 20070613
  3. RYTHMOL SR [Suspect]
     Indication: ATRIAL FIBRILLATION
     Dosage: 650 MG / PER DAY / ORAL
     Route: 048
     Dates: start: 20070613
  4. RYTHMOL SR [Suspect]
     Indication: ATRIAL FLUTTER
     Dosage: 650 MG / PER DAY / ORAL
     Route: 048
     Dates: start: 20070613
  5. BENAZEPRIL HYDROCHLORIDE [Concomitant]
  6. WARFARIN SODIUM [Concomitant]
  7. PREMARIN [Concomitant]

REACTIONS (3)
  - ATRIAL FIBRILLATION [None]
  - CARDIAC ARREST [None]
  - DYSPNOEA [None]
